FAERS Safety Report 8431154-8 (Version None)
Quarter: 2012Q2

REPORT INFORMATION
  Report Type: 
  Country: None (occurrence: None)
  Receive Date: 20120612
  Receipt Date: 20120529
  Transmission Date: 20120825
  Serious: Yes (Other)
  Sender: FDA-Public Use
  Company Number: CHPA2012US011481

PATIENT
  Age: 68 Year
  Sex: Female

DRUGS (3)
  1. OXYGEN [Concomitant]
     Indication: EMPHYSEMA
     Dosage: UNK, UNK
  2. LISINOPRIL [Concomitant]
     Indication: HYPERTENSION
     Dosage: 10 MG, QD
     Route: 048
  3. NICOTINE [Suspect]
     Indication: SMOKING CESSATION THERAPY
     Dosage: 21 MG, ONCE/SINGLE
     Route: 062
     Dates: start: 20120525, end: 20120525

REACTIONS (6)
  - HYPERHIDROSIS [None]
  - OEDEMA PERIPHERAL [None]
  - HYPERTENSION [None]
  - ERYTHEMA [None]
  - DIZZINESS [None]
  - HEADACHE [None]
